FAERS Safety Report 7215773-2 (Version None)
Quarter: 2011Q1

REPORT INFORMATION
  Report Type: 
  Country: None (occurrence: None)
  Receive Date: 20110107
  Receipt Date: 20101229
  Transmission Date: 20110831
  Serious: Yes (Other)
  Sender: FDA-Public Use
  Company Number: AU-PFIZER INC-2010156252

PATIENT
  Age: 64 Year
  Sex: Female

DRUGS (7)
  1. EFFEXOR XR [Suspect]
     Indication: MAJOR DEPRESSION
     Dosage: 75 MG, 1X/DAY
     Route: 048
     Dates: start: 20100901
  2. LYRICA [Concomitant]
     Dosage: 75 MG, 2X/DAY
  3. LIPITOR [Concomitant]
     Dosage: 40 MG, 1X/DAY
  4. EFFEXOR XR [Suspect]
     Dosage: 300 MG, MANE 1X/DAY
     Route: 048
     Dates: start: 20101027
  5. OXYCONTIN [Concomitant]
     Dosage: 200 MG, 2X/DAY
  6. RAMIPRIL [Concomitant]
     Dosage: 10 MG, 1X/DAY
  7. CARTIA XT [Concomitant]
     Dosage: UNK

REACTIONS (2)
  - DYSPNOEA [None]
  - LARYNGOSPASM [None]
